FAERS Safety Report 7332366-7 (Version None)
Quarter: 2011Q1

REPORT INFORMATION
  Report Type: 
  Country: None (occurrence: None)
  Receive Date: 20110304
  Receipt Date: 20110223
  Transmission Date: 20110831
  Serious: Yes (Death, Hospitalization)
  Sender: FDA-Public Use
  Company Number: B0530249A

PATIENT
  Age: 63 Year
  Sex: Male

DRUGS (20)
  1. CINAL [Concomitant]
     Route: 048
  2. URSO 250 [Concomitant]
     Indication: HEPATIC CIRRHOSIS
     Route: 048
  3. GLAKAY [Concomitant]
     Route: 048
  4. HEPAN ED [Concomitant]
     Route: 048
  5. FERROUS CITRATE [Concomitant]
     Route: 048
  6. LAMIVUDINE(PEPFAR) [Suspect]
     Indication: HEPATIC CIRRHOSIS
     Dosage: 100MG PER DAY
     Route: 048
     Dates: start: 20050401, end: 20080108
  7. BARACLUDE [Concomitant]
     Indication: HEPATIC CIRRHOSIS
     Dosage: 3.5MG PER DAY
     Route: 048
     Dates: start: 20080109
  8. ALDACTONE [Concomitant]
     Route: 048
  9. LACTITOL [Concomitant]
     Route: 048
  10. LACTULOSE [Concomitant]
     Route: 048
  11. PARIET [Concomitant]
     Route: 048
  12. KANAMYCIN [Concomitant]
     Route: 048
     Dates: end: 20080108
  13. BARACLUDE [Concomitant]
     Dosage: .5MG PER DAY
     Route: 048
     Dates: start: 20080123, end: 20090809
  14. MAGLAX [Concomitant]
     Route: 048
  15. HEPSERA [Concomitant]
     Indication: HEPATIC CIRRHOSIS
     Dosage: 10MG SEVEN TIMES PER DAY
     Route: 048
     Dates: start: 20070309, end: 20080108
  16. GASTER D [Concomitant]
     Route: 048
  17. LIVACT [Concomitant]
     Route: 048
  18. FOSAMAC [Concomitant]
     Route: 048
  19. FERO-GRADUMET [Concomitant]
     Route: 048
  20. FUROSEMIDE [Concomitant]
     Route: 048
     Dates: start: 20071225

REACTIONS (4)
  - OEDEMA [None]
  - PNEUMONIA [None]
  - RENAL IMPAIRMENT [None]
  - HEPATIC ENCEPHALOPATHY [None]
